FAERS Safety Report 9676296 (Version 2)
Quarter: 2013Q4

REPORT INFORMATION
  Report Type: Spontaneous
  Country: US (occurrence: None)
  Receive Date: 20131106
  Receipt Date: 20131125
  Transmission Date: 20140711
  Serious: Yes (Death)
  Sender: FDA-Public Use
  Company Number: UTC-039968

PATIENT
  Age: 50 Year
  Sex: Male
  Weight: 70.45 kg

DRUGS (4)
  1. TYVASO [Suspect]
     Indication: PULMONARY ARTERIAL HYPERTENSION
     Dosage: 18-54   MCG (4 IN 1 D),INHALATION
     Route: 055
     Dates: start: 20120727
  2. WARFARIN [Concomitant]
  3. ADCIRCA (TADALAFIL) [Concomitant]
  4. LETAIRIS (AMBRISENTAN) (TABLETS) [Concomitant]

REACTIONS (4)
  - Death [None]
  - Gout [None]
  - Dialysis [None]
  - Fluid imbalance [None]
